FAERS Safety Report 26206839 (Version 1)
Quarter: 2025Q4

REPORT INFORMATION
  Report Type: Report from Study
  Country: JP (occurrence: JP)
  Receive Date: 20251229
  Receipt Date: 20251229
  Transmission Date: 20260118
  Serious: Yes (Life-Threatening, Other)
  Sender: CSL BEHRING
  Company Number: JP-BEH-2025230555

PATIENT
  Age: 25 Year
  Sex: Female

DRUGS (82)
  1. BERINERT [Suspect]
     Active Substance: HUMAN C1-ESTERASE INHIBITOR
     Indication: Hereditary angioedema
     Dosage: 2 VIAL, BIW
     Route: 058
     Dates: start: 20231222, end: 20240305
  2. BERINERT [Suspect]
     Active Substance: HUMAN C1-ESTERASE INHIBITOR
     Indication: Prophylaxis
     Dosage: 1.5 VIAL
     Route: 058
     Dates: start: 20240306, end: 20240306
  3. BERINERT [Suspect]
     Active Substance: HUMAN C1-ESTERASE INHIBITOR
     Dosage: 2 VIAL, BIW
     Route: 058
     Dates: start: 20240308
  4. BERINERT [Suspect]
     Active Substance: HUMAN C1-ESTERASE INHIBITOR
     Indication: Hereditary angioedema
     Dosage: 3 VIAL
     Route: 042
  5. BERINERT [Suspect]
     Active Substance: HUMAN C1-ESTERASE INHIBITOR
     Indication: Hereditary angioedema
     Dosage: 3 VIAL
     Route: 042
  6. BERINERT [Suspect]
     Active Substance: HUMAN C1-ESTERASE INHIBITOR
     Indication: Eyelid oedema
  7. BERINERT [Suspect]
     Active Substance: HUMAN C1-ESTERASE INHIBITOR
     Indication: Eyelid oedema
  8. BERINERT [Suspect]
     Active Substance: HUMAN C1-ESTERASE INHIBITOR
     Indication: Lip oedema
  9. BERINERT [Suspect]
     Active Substance: HUMAN C1-ESTERASE INHIBITOR
     Indication: Lip oedema
  10. BERINERT [Suspect]
     Active Substance: HUMAN C1-ESTERASE INHIBITOR
     Indication: Tongue oedema
  11. BERINERT [Suspect]
     Active Substance: HUMAN C1-ESTERASE INHIBITOR
     Indication: Tongue oedema
  12. BERINERT [Suspect]
     Active Substance: HUMAN C1-ESTERASE INHIBITOR
     Indication: Pharyngeal oedema
  13. BERINERT [Suspect]
     Active Substance: HUMAN C1-ESTERASE INHIBITOR
     Indication: Pharyngeal oedema
  14. BERINERT [Suspect]
     Active Substance: HUMAN C1-ESTERASE INHIBITOR
     Indication: Vulvovaginal pain
  15. BERINERT [Suspect]
     Active Substance: HUMAN C1-ESTERASE INHIBITOR
     Indication: Vulvovaginal pain
  16. BERINERT [Suspect]
     Active Substance: HUMAN C1-ESTERASE INHIBITOR
     Indication: Abdominal distension
  17. BERINERT [Suspect]
     Active Substance: HUMAN C1-ESTERASE INHIBITOR
     Indication: Abdominal distension
  18. BERINERT [Suspect]
     Active Substance: HUMAN C1-ESTERASE INHIBITOR
     Indication: Swollen tongue
  19. BERINERT [Suspect]
     Active Substance: HUMAN C1-ESTERASE INHIBITOR
     Indication: Swollen tongue
  20. BERINERT [Suspect]
     Active Substance: HUMAN C1-ESTERASE INHIBITOR
     Indication: Lip swelling
  21. BERINERT [Suspect]
     Active Substance: HUMAN C1-ESTERASE INHIBITOR
     Indication: Lip swelling
  22. BERINERT [Suspect]
     Active Substance: HUMAN C1-ESTERASE INHIBITOR
     Indication: Oropharyngeal discomfort
  23. BERINERT [Suspect]
     Active Substance: HUMAN C1-ESTERASE INHIBITOR
     Indication: Oropharyngeal discomfort
  24. BERINERT [Suspect]
     Active Substance: HUMAN C1-ESTERASE INHIBITOR
     Indication: Vulvovaginal swelling
  25. BERINERT [Suspect]
     Active Substance: HUMAN C1-ESTERASE INHIBITOR
     Indication: Vulvovaginal swelling
  26. BERINERT [Suspect]
     Active Substance: HUMAN C1-ESTERASE INHIBITOR
     Indication: Urinary retention
  27. BERINERT [Suspect]
     Active Substance: HUMAN C1-ESTERASE INHIBITOR
     Indication: Urinary retention
  28. BERINERT [Suspect]
     Active Substance: HUMAN C1-ESTERASE INHIBITOR
     Indication: Vulval oedema
  29. BERINERT [Suspect]
     Active Substance: HUMAN C1-ESTERASE INHIBITOR
     Indication: Vulval oedema
  30. FIRAZYR [Concomitant]
     Active Substance: ICATIBANT ACETATE
     Indication: Hereditary angioedema
     Dosage: 30 MG
     Route: 058
  31. FIRAZYR [Concomitant]
     Active Substance: ICATIBANT ACETATE
     Indication: Prophylaxis
  32. FIRAZYR [Concomitant]
     Active Substance: ICATIBANT ACETATE
     Indication: Eyelid oedema
  33. FIRAZYR [Concomitant]
     Active Substance: ICATIBANT ACETATE
     Indication: Lip oedema
  34. FIRAZYR [Concomitant]
     Active Substance: ICATIBANT ACETATE
     Indication: Tongue oedema
  35. FIRAZYR [Concomitant]
     Active Substance: ICATIBANT ACETATE
     Indication: Pharyngeal oedema
  36. FIRAZYR [Concomitant]
     Active Substance: ICATIBANT ACETATE
     Indication: Vulvovaginal pain
  37. FIRAZYR [Concomitant]
     Active Substance: ICATIBANT ACETATE
     Indication: Abdominal distension
  38. FIRAZYR [Concomitant]
     Active Substance: ICATIBANT ACETATE
     Indication: Swollen tongue
  39. FIRAZYR [Concomitant]
     Active Substance: ICATIBANT ACETATE
     Indication: Lip swelling
  40. FIRAZYR [Concomitant]
     Active Substance: ICATIBANT ACETATE
     Indication: Oropharyngeal discomfort
  41. FIRAZYR [Concomitant]
     Active Substance: ICATIBANT ACETATE
     Indication: Vulvovaginal swelling
  42. FIRAZYR [Concomitant]
     Active Substance: ICATIBANT ACETATE
     Indication: Urinary retention
  43. FIRAZYR [Concomitant]
     Active Substance: ICATIBANT ACETATE
     Indication: Vulval oedema
  44. TRANEXAMIC ACID [Concomitant]
     Active Substance: TRANEXAMIC ACID
     Indication: Hereditary angioedema
     Dosage: 1500 MG
     Route: 042
  45. TRANEXAMIC ACID [Concomitant]
     Active Substance: TRANEXAMIC ACID
     Indication: Prophylaxis
  46. TRANEXAMIC ACID [Concomitant]
     Active Substance: TRANEXAMIC ACID
     Indication: Eyelid oedema
  47. TRANEXAMIC ACID [Concomitant]
     Active Substance: TRANEXAMIC ACID
     Indication: Lip oedema
  48. TRANEXAMIC ACID [Concomitant]
     Active Substance: TRANEXAMIC ACID
     Indication: Tongue oedema
  49. TRANEXAMIC ACID [Concomitant]
     Active Substance: TRANEXAMIC ACID
     Indication: Pharyngeal oedema
  50. TRANEXAMIC ACID [Concomitant]
     Active Substance: TRANEXAMIC ACID
     Indication: Vulvovaginal pain
  51. TRANEXAMIC ACID [Concomitant]
     Active Substance: TRANEXAMIC ACID
     Indication: Abdominal distension
  52. TRANEXAMIC ACID [Concomitant]
     Active Substance: TRANEXAMIC ACID
     Indication: Swollen tongue
  53. TRANEXAMIC ACID [Concomitant]
     Active Substance: TRANEXAMIC ACID
     Indication: Lip swelling
  54. TRANEXAMIC ACID [Concomitant]
     Active Substance: TRANEXAMIC ACID
     Indication: Oropharyngeal discomfort
  55. TRANEXAMIC ACID [Concomitant]
     Active Substance: TRANEXAMIC ACID
     Indication: Vulvovaginal swelling
  56. TRANEXAMIC ACID [Concomitant]
     Active Substance: TRANEXAMIC ACID
     Indication: Urinary retention
  57. TRANEXAMIC ACID [Concomitant]
     Active Substance: TRANEXAMIC ACID
     Indication: Vulval oedema
  58. ORLADEYO [Concomitant]
     Active Substance: BEROTRALSTAT HYDROCHLORIDE
     Indication: Hereditary angioedema
     Dosage: 150 MG
     Route: 048
  59. ORLADEYO [Concomitant]
     Active Substance: BEROTRALSTAT HYDROCHLORIDE
     Indication: Prophylaxis
  60. TRANEXAMIC ACID [Concomitant]
     Active Substance: TRANEXAMIC ACID
     Indication: Hereditary angioedema
     Dosage: 1500 MG
     Route: 048
  61. TRANEXAMIC ACID [Concomitant]
     Active Substance: TRANEXAMIC ACID
     Indication: Prophylaxis
  62. TRANEXAMIC ACID [Concomitant]
     Active Substance: TRANEXAMIC ACID
     Indication: Eyelid oedema
  63. TRANEXAMIC ACID [Concomitant]
     Active Substance: TRANEXAMIC ACID
     Indication: Lip oedema
  64. TRANEXAMIC ACID [Concomitant]
     Active Substance: TRANEXAMIC ACID
     Indication: Tongue oedema
  65. TRANEXAMIC ACID [Concomitant]
     Active Substance: TRANEXAMIC ACID
     Indication: Pharyngeal oedema
  66. TRANEXAMIC ACID [Concomitant]
     Active Substance: TRANEXAMIC ACID
     Indication: Vulvovaginal pain
  67. TRANEXAMIC ACID [Concomitant]
     Active Substance: TRANEXAMIC ACID
     Indication: Abdominal distension
  68. TRANEXAMIC ACID [Concomitant]
     Active Substance: TRANEXAMIC ACID
     Indication: Swollen tongue
  69. TRANEXAMIC ACID [Concomitant]
     Active Substance: TRANEXAMIC ACID
     Indication: Lip swelling
  70. TRANEXAMIC ACID [Concomitant]
     Active Substance: TRANEXAMIC ACID
     Indication: Oropharyngeal discomfort
  71. TRANEXAMIC ACID [Concomitant]
     Active Substance: TRANEXAMIC ACID
     Indication: Vulvovaginal swelling
  72. TRANEXAMIC ACID [Concomitant]
     Active Substance: TRANEXAMIC ACID
     Indication: Urinary retention
  73. TRANEXAMIC ACID [Concomitant]
     Active Substance: TRANEXAMIC ACID
     Indication: Vulval oedema
  74. EPINEPHRINE [Concomitant]
     Active Substance: EPINEPHRINE
     Indication: Hereditary angioedema
     Dosage: 0.4 ML
     Route: 030
  75. EPINEPHRINE [Concomitant]
     Active Substance: EPINEPHRINE
     Indication: Prophylaxis
  76. EPINEPHRINE [Concomitant]
     Active Substance: EPINEPHRINE
     Indication: Eyelid oedema
  77. EPINEPHRINE [Concomitant]
     Active Substance: EPINEPHRINE
     Indication: Lip oedema
  78. EPINEPHRINE [Concomitant]
     Active Substance: EPINEPHRINE
     Indication: Tongue oedema
  79. EPINEPHRINE [Concomitant]
     Active Substance: EPINEPHRINE
     Indication: Pharyngeal oedema
  80. EPINEPHRINE [Concomitant]
     Active Substance: EPINEPHRINE
     Indication: Vulvovaginal pain
  81. TAKHZYRO [Concomitant]
     Active Substance: LANADELUMAB-FLYO
     Indication: Hereditary angioedema
     Dosage: 300 MG
     Route: 058
     Dates: start: 20231109
  82. TAKHZYRO [Concomitant]
     Active Substance: LANADELUMAB-FLYO
     Indication: Prophylaxis

REACTIONS (31)
  - Hereditary angioedema [Unknown]
  - Eyelid oedema [Recovered/Resolved]
  - Lip oedema [Recovered/Resolved]
  - Tongue oedema [Recovered/Resolved]
  - Pharyngeal oedema [Recovered/Resolved]
  - Vulvovaginal pain [Recovered/Resolved]
  - Hereditary angioedema [Unknown]
  - Abdominal distension [Recovered/Resolved]
  - Hereditary angioedema [Unknown]
  - Vulvovaginal pain [Recovered/Resolved]
  - Abdominal distension [Recovered/Resolved]
  - Swollen tongue [Recovered/Resolved]
  - Lip swelling [Recovered/Resolved]
  - Hereditary angioedema [Unknown]
  - Eyelid oedema [Recovered/Resolved]
  - Oropharyngeal discomfort [Recovered/Resolved]
  - Swollen tongue [Recovered/Resolved]
  - Vulval oedema [Recovered/Resolved]
  - Hereditary angioedema [Unknown]
  - Urinary retention [Recovered/Resolved]
  - Abdominal distension [Recovered/Resolved]
  - Hereditary angioedema [Unknown]
  - Urinary retention [Recovered/Resolved]
  - Vulvovaginal swelling [Recovered/Resolved]
  - Swollen tongue [Recovered/Resolved]
  - Eyelid oedema [Recovered/Resolved]
  - Abdominal distension [Recovered/Resolved]
  - Hernia [Recovered/Resolved]
  - Hernia [Recovered/Resolved]
  - Maternal exposure during pregnancy [Unknown]
  - Off label use [Unknown]

NARRATIVE: CASE EVENT DATE: 20240201
